FAERS Safety Report 25390349 (Version 1)
Quarter: 2025Q2

REPORT INFORMATION
  Report Type: Spontaneous
  Country: US (occurrence: None)
  Receive Date: 20250602
  Receipt Date: 20250602
  Transmission Date: 20250717
  Serious: Yes (Other)
  Sender: FDA-CTU
  Company Number: None

PATIENT
  Age: 55 Year
  Sex: Male
  Weight: 93.89 kg

DRUGS (3)
  1. TOPAMAX [Suspect]
     Active Substance: TOPIRAMATE
     Indication: Affective disorder
     Dosage: FREQUENCY : EVERY OTHER WEEK;?
     Route: 048
     Dates: start: 20250531, end: 20250602
  2. TOPAMAX [Suspect]
     Active Substance: TOPIRAMATE
     Indication: Anxiety
  3. TOPAMAX [Suspect]
     Active Substance: TOPIRAMATE
     Indication: Alcoholism

REACTIONS (4)
  - Pruritus [None]
  - Pruritus [None]
  - Erythema [None]
  - Adverse drug reaction [None]

NARRATIVE: CASE EVENT DATE: 20250602
